FAERS Safety Report 6276014-6 (Version None)
Quarter: 2009Q3

REPORT INFORMATION
  Report Type: 
  Country: None (occurrence: None)
  Receive Date: 20090720
  Receipt Date: 20090708
  Transmission Date: 20100115
  Serious: Yes (Other)
  Sender: FDA-Public Use
  Company Number: 8048905

PATIENT
  Age: 38 Year
  Sex: Female
  Weight: 82 kg

DRUGS (8)
  1. CDP870 [Suspect]
     Indication: RHEUMATOID ARTHRITIS
     Dosage: 400 MG 1/2W SC
     Route: 058
     Dates: start: 20050901
  2. METHOTREXATE [Concomitant]
  3. ETORICOXIB [Concomitant]
  4. FOLIC ACID [Concomitant]
  5. MEPREDNISONE [Concomitant]
  6. FLUOXETINE [Concomitant]
  7. RANITIDINE [Concomitant]
  8. LEVOTHYROXINE SODIUM [Concomitant]

REACTIONS (5)
  - ANKLE FRACTURE [None]
  - DEPRESSION [None]
  - INFECTION [None]
  - PHARYNGITIS [None]
  - TONSILLITIS [None]
